FAERS Safety Report 7296309-7 (Version None)
Quarter: 2011Q1

REPORT INFORMATION
  Report Type: 
  Country: None (occurrence: None)
  Receive Date: 20110211
  Receipt Date: 20110211
  Transmission Date: 20110831
  Serious: Yes (Hospitalization)
  Sender: FDA-Public Use
  Company Number: None

PATIENT
  Age: 79 Year
  Sex: Male

DRUGS (9)
  1. MORPHINE [Concomitant]
  2. HYDROCODONE BITARTRATE + ACETAMINOPHEN [Concomitant]
  3. REVLIMID [Suspect]
     Indication: MULTIPLE MYELOMA
     Dosage: REVLIMID 15 MG DAILY ORALLY
     Route: 048
     Dates: start: 20090301
  4. SPIRIVA [Concomitant]
  5. OMEPRAZOLE [Concomitant]
  6. LISINOPRIL [Concomitant]
  7. TERAZOSIN [Concomitant]
  8. DIAZEPAM [Concomitant]
  9. DOCUSATE [Concomitant]

REACTIONS (10)
  - CHILLS [None]
  - DIZZINESS [None]
  - NEUROPATHY PERIPHERAL [None]
  - CELLULITIS [None]
  - COUGH [None]
  - LACTIC ACIDOSIS [None]
  - PNEUMONIA [None]
  - HIP FRACTURE [None]
  - PANCYTOPENIA [None]
  - BRONCHITIS [None]
